FAERS Safety Report 5265973-6 (Version None)
Quarter: 2007Q1

REPORT INFORMATION
  Report Type: 
  Country: None (occurrence: None)
  Receive Date: 20070315
  Receipt Date: 20070308
  Transmission Date: 20070707
  Serious: Yes (Hospitalization)
  Sender: FDA-Public Use
  Company Number: JP-BAYER-200611172BYL

PATIENT
  Age: 79 Year
  Sex: Male

DRUGS (9)
  1. ADALAT [Suspect]
     Dosage: AS USED: 40 MG  UNIT DOSE: 40 MG
     Route: 048
     Dates: end: 20060616
  2. ADALAT [Suspect]
     Dosage: UNIT DOSE: 20 MG
     Route: 048
     Dates: start: 20060705, end: 20060711
  3. ADALAT [Suspect]
     Dosage: UNIT DOSE: 20 MG
     Route: 048
     Dates: start: 20060926
  4. ASPIRIN [Suspect]
     Dosage: UNIT DOSE: 100 MG
     Route: 048
     Dates: start: 20060628, end: 20060705
  5. ASPIRIN [Suspect]
     Dosage: UNIT DOSE: 100 MG
     Route: 048
     Dates: start: 20060926, end: 20061005
  6. CIBENOL [Concomitant]
     Route: 065
  7. PARIET [Concomitant]
     Route: 048
     Dates: end: 20060705
  8. WARFARIN SODIUM [Concomitant]
     Route: 048
     Dates: start: 20060614, end: 20060628
  9. WARFARIN SODIUM [Concomitant]
     Route: 048
     Dates: start: 20060628, end: 20060705

REACTIONS (1)
  - RENAL FAILURE ACUTE [None]
